FAERS Safety Report 4714531-8 (Version None)
Quarter: 2005Q3

REPORT INFORMATION
  Report Type: 
  Country: None (occurrence: None)
  Receive Date: 20050714
  Receipt Date: 20050630
  Transmission Date: 20060218
  Serious: Yes (Other)
  Sender: FDA-Public Use
  Company Number: GB-MERCK-0507GBR00007

PATIENT
  Age: 64 Year
  Sex: Female

DRUGS (5)
  1. ALENDRONATE SODIUM [Suspect]
     Indication: OSTEOPOROSIS
     Route: 048
     Dates: start: 20050622, end: 20050622
  2. ACETAMINOPHEN [Concomitant]
     Route: 065
  3. ACETAMINOPHEN [Concomitant]
     Route: 065
     Dates: start: 20030911
  4. CALCIUM CARBONATE AND CHOLECALCIFEROL [Concomitant]
     Route: 065
     Dates: start: 20020227
  5. FOSAMAX [Suspect]
     Indication: OSTEOPOROSIS
     Route: 048
     Dates: end: 20050601

REACTIONS (2)
  - PYREXIA [None]
  - VOMITING [None]
